FAERS Safety Report 7574501-1 (Version None)
Quarter: 2011Q2

REPORT INFORMATION
  Report Type: 
  Country: None (occurrence: None)
  Receive Date: 20110627
  Receipt Date: 20110527
  Transmission Date: 20111010
  Serious: No
  Sender: FDA-Public Use
  Company Number: US-BAYER-2011-047227

PATIENT
  Sex: Female
  Weight: 45 kg

DRUGS (2)
  1. MIDOL MENSTRUAL COMPLETE CAPLETS [Suspect]
     Indication: DYSMENORRHOEA
     Dosage: 1 DF, UNK
     Route: 048
     Dates: start: 19890101
  2. MIDOL LIQUID GELS [Suspect]
     Indication: DYSMENORRHOEA
     Dosage: 1 DF, Q4HR
     Route: 048

REACTIONS (2)
  - ABDOMINAL DISCOMFORT [None]
  - TREMOR [None]
